FAERS Safety Report 5426221-7 (Version None)
Quarter: 2007Q3

REPORT INFORMATION
  Report Type: 
  Country: None (occurrence: None)
  Receive Date: 20070827
  Receipt Date: 20070813
  Transmission Date: 20080115
  Serious: Yes (Other)
  Sender: FDA-Public Use
  Company Number: US-ROCHE-503358

PATIENT
  Age: 16 Year
  Sex: Male
  Weight: 97.5 kg

DRUGS (2)
  1. ACCUTANE [Suspect]
     Indication: ACNE
     Route: 048
     Dates: start: 20021114, end: 20030430
  2. MINOCIN [Concomitant]
     Dosage: DOSE REGIMEN REPORTED AS 75MG-100MG.
     Route: 048
     Dates: start: 20021117

REACTIONS (9)
  - ANAEMIA [None]
  - COLITIS [None]
  - COLITIS ULCERATIVE [None]
  - CROHN'S DISEASE [None]
  - DRY SKIN [None]
  - EMOTIONAL DISTRESS [None]
  - ILEITIS [None]
  - INFLAMMATORY BOWEL DISEASE [None]
  - LIP DRY [None]
